FAERS Safety Report 22945972 (Version 2)
Quarter: 2023Q4

REPORT INFORMATION
  Report Type: Report from Study
  Country: US (occurrence: US)
  Receive Date: 20230915
  Receipt Date: 20231009
  Transmission Date: 20240109
  Serious: No
  Sender: FDA-Public Use
  Company Number: US-ACADIA PHARMACEUTICALS INC.-ACA-2023-TRF-003656

PATIENT
  Age: 18 Year
  Sex: Female

DRUGS (5)
  1. DAYBUE [Suspect]
     Active Substance: TROFINETIDE
     Indication: Rett syndrome
     Dosage: 50 MILLILITER, BID
     Route: 048
     Dates: start: 20230804, end: 20230819
  2. PIROXICAM [Concomitant]
     Active Substance: PIROXICAM
     Indication: Affective disorder
  3. PIROXICAM [Concomitant]
     Active Substance: PIROXICAM
     Indication: Abnormal behaviour
  4. LAMICTAL [Concomitant]
     Active Substance: LAMOTRIGINE
     Indication: Seizure
     Dosage: INCREASE TO 1 TAB (25MG) DAILY
  5. LAMICTAL [Concomitant]
     Active Substance: LAMOTRIGINE
     Dosage: NCREASE BY HALF A TAB AND BID EVERY WEEK

REACTIONS (1)
  - Eye movement disorder [Recovered/Resolved]

NARRATIVE: CASE EVENT DATE: 20230817
